FAERS Safety Report 7926306-7 (Version None)
Quarter: 2011Q4

REPORT INFORMATION
  Report Type: 
  Country: None (occurrence: None)
  Receive Date: 20111118
  Receipt Date: 20111114
  Transmission Date: 20120403
  Serious: Yes (Hospitalization, Other)
  Sender: FDA-Public Use
  Company Number: US-BIOGENIDEC-2011BI043582

PATIENT
  Age: 59 Year
  Sex: Female

DRUGS (2)
  1. AVONEX [Suspect]
     Route: 030
     Dates: start: 20030801
  2. AVONEX [Suspect]
     Indication: MULTIPLE SCLEROSIS
     Route: 030
     Dates: start: 20010601, end: 20030801

REACTIONS (5)
  - BLOOD SODIUM DECREASED [None]
  - HYPERTHYROIDISM [None]
  - POST PROCEDURAL HYPOTHYROIDISM [None]
  - DEHYDRATION [None]
  - SODIUM RETENTION [None]
